FAERS Safety Report 9118206 (Version 1)
Quarter: 2013Q1

REPORT INFORMATION
  Report Type: Spontaneous
  Country: US (occurrence: US)
  Receive Date: 20130129
  Receipt Date: 20130129
  Transmission Date: 20140127
  Serious: No
  Sender: FDA-Public Use
  Company Number: US-ABBOTT-12P-163-0937902-00

PATIENT
  Age: 50 None
  Sex: Female
  Weight: 82.17 kg

DRUGS (6)
  1. HUMIRA 40 MG/0.8 ML PEN [Suspect]
     Indication: UVEITIS
     Dates: start: 201109, end: 201110
  2. HUMIRA 40 MG/0.8 ML PEN [Suspect]
     Indication: RHEUMATOID ARTHRITIS
  3. CELLCEPT [Concomitant]
     Indication: RHEUMATOID ARTHRITIS
  4. CELLCEPT [Concomitant]
     Indication: UVEITIS
  5. NEXIUM [Concomitant]
     Indication: GASTROOESOPHAGEAL REFLUX DISEASE
  6. XANAX [Concomitant]
     Indication: INSOMNIA
     Dosage: AT BEDTIME

REACTIONS (12)
  - Off label use [Not Recovered/Not Resolved]
  - Influenza like illness [Recovered/Resolved]
  - Rash papular [Recovered/Resolved]
  - Fatigue [Recovered/Resolved]
  - Feeling abnormal [Recovered/Resolved]
  - Dyspnoea [Recovered/Resolved]
  - Feeling abnormal [Recovered/Resolved]
  - Nausea [Not Recovered/Not Resolved]
  - Abdominal distension [Not Recovered/Not Resolved]
  - Flatulence [Not Recovered/Not Resolved]
  - Gastrointestinal inflammation [Unknown]
  - Coeliac disease [Not Recovered/Not Resolved]
